FAERS Safety Report 4940746-X (Version None)
Quarter: 2006Q1

REPORT INFORMATION
  Report Type: 
  Country: None (occurrence: None)
  Receive Date: 20060307
  Receipt Date: 20060301
  Transmission Date: 20060701
  Serious: Yes (Other)
  Sender: FDA-Public Use
  Company Number: 2006S1000044

PATIENT
  Age: 13 Day
  Sex: Female

DRUGS (8)
  1. INOMAX [Suspect]
     Indication: LUNG DISORDER
     Dosage: 5 PPM;CONT
     Route: 055
     Dates: start: 20060215, end: 20060222
  2. INOMAX [Suspect]
     Indication: PROPHYLAXIS
     Dosage: 5 PPM;CONT
     Route: 055
     Dates: start: 20060215, end: 20060222
  3. THEOPHYLLINE [Concomitant]
  4. VITAMIN C (ABSCORBIC ACID) [Concomitant]
  5. BENSYLPENICILLIN (BENZYLPENICILLIN) [Concomitant]
  6. GENTAMICIN [Concomitant]
  7. SODIUM CHLORIDE [Concomitant]
  8. CUROSURF [Concomitant]

REACTIONS (4)
  - NEONATAL DISORDER [None]
  - OXYGEN SATURATION DECREASED [None]
  - PNEUMOMEDIASTINUM [None]
  - RESPIRATORY RATE INCREASED [None]
